FAERS Safety Report 13193196 (Version 5)
Quarter: 2020Q2

REPORT INFORMATION
  Report Type: Spontaneous
  Country: JP (occurrence: JP)
  Receive Date: 20170207
  Receipt Date: 20200401
  Transmission Date: 20200713
  Serious: Yes (Other)
  Sender: FDA-Public Use
  Company Number: JP-009507513-1702JPN000085J

PATIENT

DRUGS (2)
  1. NIDRAN [Suspect]
     Active Substance: NIMUSTINE
     Indication: MALIGNANT GLIOMA
     Dosage: 40 MG/M2, UNK
     Route: 042
  2. TEMODAL [Suspect]
     Active Substance: TEMOZOLOMIDE
     Indication: MALIGNANT GLIOMA
     Dosage: 150 MG/M2, UNK
     Route: 048

REACTIONS (1)
  - Embolism [Unknown]
